FAERS Safety Report 5637426-4 (Version None)
Quarter: 2008Q1

REPORT INFORMATION
  Report Type: 
  Country: None (occurrence: None)
  Receive Date: 20080225
  Receipt Date: 20080213
  Transmission Date: 20080703
  Serious: Yes (Congenital Anomaly, Other)
  Sender: FDA-Public Use
  Company Number: FR-PFIZER INC-2008013944

PATIENT
  Sex: Female

DRUGS (8)
  1. LYSANXIA [Suspect]
     Route: 064
  2. CLONAZEPAM [Suspect]
     Route: 064
  3. SULFARLEM [Suspect]
     Route: 064
  4. LARGACTIL [Suspect]
     Route: 064
  5. LEPTICUR [Suspect]
     Route: 064
  6. PAROXETINE HCL [Suspect]
     Route: 064
  7. DAFALGAN [Concomitant]
  8. SUBUTEX [Concomitant]

REACTIONS (3)
  - CAUDAL REGRESSION SYNDROME [None]
  - CONGENITAL BLADDER ANOMALY [None]
  - DRUG EXPOSURE DURING PREGNANCY [None]
